FAERS Safety Report 9240735 (Version 1)
Quarter: 2013Q1

REPORT INFORMATION
  Report Type: Spontaneous
  Country: US (occurrence: None)
  Receive Date: 20121120
  Receipt Date: 20121120
  Transmission Date: 20140127
  Serious: No
  Sender: FDA-Public Use
  Company Number: 1000037566

PATIENT
  Age: 61 Year
  Sex: Female

DRUGS (5)
  1. VIIBRYD [Suspect]
     Indication: DEPRESSION
     Route: 048
     Dates: start: 201205
  2. VIIBRYD [Suspect]
     Indication: DEPRESSION
     Route: 048
  3. FEMTRACE(ESTRADIOL ACETATE)(ESTRADIOL ACETATE) [Concomitant]
  4. SIMVASTATIN(SIMVASTATIN)(SIMVASTATIN) [Concomitant]
  5. VITAMIN D(VITAMIN D)(VITAMIN D) [Concomitant]

REACTIONS (3)
  - Nervousness [None]
  - Agitation [None]
  - Weight increased [None]
